FAERS Safety Report 7328816-2 (Version None)
Quarter: 2011Q1

REPORT INFORMATION
  Report Type: 
  Country: None (occurrence: None)
  Receive Date: 20110225
  Receipt Date: 20110225
  Transmission Date: 20110831
  Serious: Yes (Other)
  Sender: FDA-Public Use
  Company Number: None

PATIENT
  Age: 34 Year
  Sex: Male
  Weight: 84 kg

DRUGS (1)
  1. ABILIFY [Suspect]
     Dosage: 2 MG DAILY PO
     Route: 048
     Dates: start: 20100929, end: 20110216

REACTIONS (1)
  - SUICIDAL IDEATION [None]
